FAERS Safety Report 25484929 (Version 1)
Quarter: 2025Q2

REPORT INFORMATION
  Report Type: Spontaneous
  Country: US (occurrence: US)
  Receive Date: 20250626
  Receipt Date: 20250626
  Transmission Date: 20250717
  Serious: No
  Sender: SANOFI AVENTIS
  Company Number: US-SA-2025SA180367

PATIENT
  Sex: Female
  Weight: 106.82 kg

DRUGS (18)
  1. DUPIXENT [Suspect]
     Active Substance: DUPILUMAB
     Indication: Dermatitis atopic
     Dosage: 300 MG, QOW
     Route: 058
  2. RINVOQ [Concomitant]
     Active Substance: UPADACITINIB
  3. NORTREL [ETHINYLESTRADIOL;NORETHISTERONE] [Concomitant]
  4. ONDANSETRON [Concomitant]
     Active Substance: ONDANSETRON
  5. FENTANYL [Concomitant]
     Active Substance: FENTANYL
  6. VERAPAMIL HYDROCHLORIDE [Concomitant]
     Active Substance: VERAPAMIL HYDROCHLORIDE
  7. CLONIDINE [Concomitant]
     Active Substance: CLONIDINE
  8. UBRELVY [Concomitant]
     Active Substance: UBROGEPANT
  9. QULIPTA [Concomitant]
     Active Substance: ATOGEPANT
  10. PLAQUENIL [Concomitant]
     Active Substance: HYDROXYCHLOROQUINE SULFATE
  11. ACETAMINOPHEN\HYDROCODONE [Concomitant]
     Active Substance: ACETAMINOPHEN\HYDROCODONE
  12. NEXIUM [Concomitant]
     Active Substance: ESOMEPRAZOLE MAGNESIUM
  13. MIDODRINE HYDROCHLORIDE [Concomitant]
     Active Substance: MIDODRINE HYDROCHLORIDE
  14. XANAX [Concomitant]
     Active Substance: ALPRAZOLAM
  15. CYMBALTA [Concomitant]
     Active Substance: DULOXETINE HYDROCHLORIDE
  16. BELSOMRA [Concomitant]
     Active Substance: SUVOREXANT
  17. SILENOR [Concomitant]
     Active Substance: DOXEPIN HYDROCHLORIDE
  18. LAMICTAL [Concomitant]
     Active Substance: LAMOTRIGINE

REACTIONS (1)
  - Illness [Unknown]
